FAERS Safety Report 5803511-7 (Version None)
Quarter: 2008Q3

REPORT INFORMATION
  Report Type: 
  Country: None (occurrence: None)
  Receive Date: 20080708
  Receipt Date: 20080610
  Transmission Date: 20090109
  Serious: Yes (Hospitalization)
  Sender: FDA-Public Use
  Company Number: DE-GENENTECH-262949

PATIENT
  Sex: Female

DRUGS (1)
  1. BEVACIZUMAB [Suspect]
     Indication: BREAST CANCER METASTATIC
     Dosage: 1350 MG, BID
     Route: 042
     Dates: start: 20071116

REACTIONS (3)
  - ANAEMIA [None]
  - PYREXIA [None]
  - URINARY TRACT INFECTION [None]
